FAERS Safety Report 16489377 (Version 5)
Quarter: 2019Q3

REPORT INFORMATION
  Report Type: Spontaneous
  Country: CA (occurrence: CA)
  Receive Date: 20190628
  Receipt Date: 20190904
  Transmission Date: 20191004
  Serious: Yes (Other)
  Sender: FDA-Public Use
  Company Number: CA-CELLTRION INC.-2019CA022238

PATIENT

DRUGS (14)
  1. INFLECTRA [Suspect]
     Active Substance: INFLIXIMAB-DYYB
     Dosage: 450 MG EVERY 6 WEEKS
     Route: 042
     Dates: start: 20190503
  2. PANTOLOC CONTROL [Concomitant]
     Active Substance: PANTOPRAZOLE SODIUM
     Dosage: 40 MG, 1X/DAY
     Route: 065
  3. INFLECTRA [Suspect]
     Active Substance: INFLIXIMAB-DYYB
     Dosage: 450 MG EVERY 6 WEEKS
     Route: 042
     Dates: start: 20190318
  4. INFLECTRA [Suspect]
     Active Substance: INFLIXIMAB-DYYB
     Dosage: 500 MG, EVERY 4 WEEKS
     Route: 042
     Dates: start: 20190823
  5. INFLECTRA [Suspect]
     Active Substance: INFLIXIMAB-DYYB
     Indication: COLITIS ULCERATIVE
     Dosage: 450 MG Q (EVERY) 6 WEEKS
     Route: 042
     Dates: start: 201802
  6. INFLECTRA [Suspect]
     Active Substance: INFLIXIMAB-DYYB
     Dosage: 450 MG EVERY 6 WEEKS
     Route: 042
     Dates: start: 20190726
  7. VITAMIN D 2000 [Concomitant]
     Active Substance: VITAMIN D NOS
     Dosage: UNK
  8. FOLIC ACID. [Concomitant]
     Active Substance: FOLIC ACID
     Dosage: UNK
     Route: 065
  9. METHOTREXATE. [Concomitant]
     Active Substance: METHOTREXATE
     Dosage: 20 MG, DAILY
     Route: 065
  10. METHOTREXATE. [Concomitant]
     Active Substance: METHOTREXATE
     Dosage: 20 MG, DAILY
     Route: 065
     Dates: start: 201812
  11. INFLECTRA [Suspect]
     Active Substance: INFLIXIMAB-DYYB
     Dosage: 450 MG Q 0, 2, 6 WEEKS, THEN EVERY 8 WEEKS
     Route: 042
     Dates: start: 20180314, end: 20190201
  12. INFLECTRA [Suspect]
     Active Substance: INFLIXIMAB-DYYB
     Dosage: 450 MG EVERY 6 WEEKS
     Route: 042
     Dates: start: 20190614
  13. PREDNISONE. [Concomitant]
     Active Substance: PREDNISONE
     Indication: COLITIS ULCERATIVE
     Dosage: TAPER
     Route: 048
     Dates: start: 201905
  14. NORVASC [Concomitant]
     Active Substance: AMLODIPINE BESYLATE
     Dosage: 7.5 MG, 1X/DAY
     Route: 065

REACTIONS (9)
  - Defaecation urgency [Unknown]
  - Condition aggravated [Recovered/Resolved]
  - Weight decreased [Unknown]
  - Inappropriate schedule of product administration [Not Recovered/Not Resolved]
  - Drug level decreased [Unknown]
  - Off label use [Not Recovered/Not Resolved]
  - Fungal infection [Not Recovered/Not Resolved]
  - Condition aggravated [Unknown]
  - Haematochezia [Unknown]

NARRATIVE: CASE EVENT DATE: 201905
